FAERS Safety Report 23316509 (Version 1)
Quarter: 2023Q4

REPORT INFORMATION
  Report Type: Spontaneous
  Country: US (occurrence: None)
  Receive Date: 20231219
  Receipt Date: 20231219
  Transmission Date: 20240110
  Serious: No
  Sender: FDA-Public Use
  Company Number: US-ROCHE-3380803

PATIENT
  Age: 63 Year
  Sex: Male

DRUGS (14)
  1. HEMLIBRA [Suspect]
     Active Substance: EMICIZUMAB-KXWH
     Indication: Factor VIII deficiency
     Dosage: MAINTENANCE DOSE: INJECT HEMLIBRA 1.8 ML SUBCUTANEOUSLY (UNDER THE SKIN) EVERY 14 DAYS TOTAL DOSE 27
     Route: 058
  2. AMICAR [Concomitant]
     Active Substance: AMINOCAPROIC ACID
  3. TRANEXAMIC ACID [Concomitant]
     Active Substance: TRANEXAMIC ACID
  4. TYLENOL EXTRA STRENGTH [Concomitant]
     Active Substance: ACETAMINOPHEN
  5. TRAMADOL HCL ER [Concomitant]
  6. CELEBREX [Concomitant]
     Active Substance: CELECOXIB
  7. TUSSIN CF MAX [Concomitant]
     Active Substance: DEXTROMETHORPHAN HYDROBROMIDE\GUAIFENESIN\PHENYLEPHRINE HYDROCHLORIDE
  8. LISINOPRIL AND HYDROCHLOROTHIAZIDE [Concomitant]
     Active Substance: HYDROCHLOROTHIAZIDE\LISINOPRIL
  9. METFORMIN HYDROCHLORIDE [Concomitant]
     Active Substance: METFORMIN HYDROCHLORIDE
  10. DULOXETINE HYDROCHLORIDE [Concomitant]
     Active Substance: DULOXETINE HYDROCHLORIDE
  11. ALKA-SELTZER [Concomitant]
     Active Substance: ANHYDROUS CITRIC ACID\ASPIRIN\SODIUM BICARBONATE
  12. CETIRIZINE HCL [Concomitant]
     Active Substance: CETIRIZINE HYDROCHLORIDE
  13. VOLTAREN [Concomitant]
     Active Substance: DICLOFENAC SODIUM
  14. ATORVASTATIN CALCIUM [Concomitant]
     Active Substance: ATORVASTATIN CALCIUM

REACTIONS (1)
  - Haemorrhage [Unknown]
